FAERS Safety Report 15765530 (Version 1)
Quarter: 2018Q4

REPORT INFORMATION
  Report Type: Spontaneous
  Country: US (occurrence: US)
  Receive Date: 20181227
  Receipt Date: 20181227
  Transmission Date: 20190205
  Serious: Yes (Hospitalization, Other)
  Sender: FDA-Public Use
  Company Number: US-SA-2018SA388436

PATIENT
  Age: 34 Year
  Sex: Female

DRUGS (1)
  1. LEMTRADA [Suspect]
     Active Substance: ALEMTUZUMAB
     Route: 041

REACTIONS (5)
  - Heart rate abnormal [Unknown]
  - Bradycardia [Unknown]
  - Chest discomfort [Recovered/Resolved]
  - Sinus bradycardia [Unknown]
  - Condition aggravated [Recovered/Resolved]
